FAERS Safety Report 8493223-6 (Version None)
Quarter: 2012Q3

REPORT INFORMATION
  Report Type: 
  Country: None (occurrence: None)
  Receive Date: 20120706
  Receipt Date: 20120629
  Transmission Date: 20120928
  Serious: Yes (Hospitalization)
  Sender: FDA-Public Use
  Company Number: PHHY2012AR056723

PATIENT
  Sex: Female

DRUGS (1)
  1. DIOVAN [Suspect]
     Indication: HYPERTENSION
     Dosage: 80 MG, DAILY
     Dates: start: 20100101

REACTIONS (6)
  - WEIGHT DECREASED [None]
  - JOINT SWELLING [None]
  - MALAISE [None]
  - ELECTROLYTE IMBALANCE [None]
  - OEDEMA PERIPHERAL [None]
  - FEELING ABNORMAL [None]
